FAERS Safety Report 25015106 (Version 1)
Quarter: 2025Q1

REPORT INFORMATION
  Report Type: Spontaneous
  Country: IT (occurrence: IT)
  Receive Date: 20250226
  Receipt Date: 20250226
  Transmission Date: 20250408
  Serious: Yes (Death)
  Sender: PFIZER
  Company Number: None

PATIENT
  Age: 73 Year
  Sex: Male
  Weight: 90 kg

DRUGS (16)
  1. RITUXIMAB [Suspect]
     Active Substance: RITUXIMAB
     Indication: Lymphoma
     Route: 042
     Dates: start: 20241021, end: 20241120
  2. FUROSEMIDE [Concomitant]
     Active Substance: FUROSEMIDE
     Dosage: 125 MG, DAILY
  3. PREDNISONE [Concomitant]
     Active Substance: PREDNISONE
  4. BACTRIM [Concomitant]
     Active Substance: SULFAMETHOXAZOLE\TRIMETHOPRIM
     Indication: Prophylaxis
     Route: 048
  5. FOLIC ACID [Concomitant]
     Active Substance: FOLIC ACID
     Dosage: 5 MG, DAILY (1 TABLET PER DAY)
     Route: 048
  6. DEURSIL [Concomitant]
     Active Substance: URSODIOL
     Dosage: 300 MG, DAILY (1 TABLET 3 TIMES/DAY)
     Route: 048
  7. NEBIVOLOL [Concomitant]
     Active Substance: NEBIVOLOL
     Route: 048
  8. LACIDIPINE [Concomitant]
     Active Substance: LACIDIPINE
     Dosage: 6 MG,FREQ:24 H (1 CP/DAY)
     Route: 048
  9. CHOLECALCIFEROL [Concomitant]
     Active Substance: CHOLECALCIFEROL
     Dosage: 25 DROP, WEEKLY (25,000 IU)
     Route: 048
  10. DOXAZOSIN [Concomitant]
     Active Substance: DOXAZOSIN MESYLATE
  11. LANSOPRAZOLE [Concomitant]
     Active Substance: LANSOPRAZOLE
     Dosage: 30 MG, DAILY (1 TABLET/DAY)
     Route: 048
  12. CYANOCOBALAMIN\PYRIDOXINE\THIAMINE [Concomitant]
     Active Substance: CYANOCOBALAMIN\PYRIDOXINE\THIAMINE
     Dosage: 1 TABLET, DAILY
  13. ERYTHROPOIETIN [Concomitant]
     Active Substance: ERYTHROPOIETIN
     Dosage: 10000 IU, WEEKLY
  14. LANTUS [Concomitant]
     Active Substance: INSULIN GLARGINE
     Dosage: 8 UI/DAILY
  15. HUMALOG [Concomitant]
     Active Substance: INSULIN LISPRO
  16. CEFIXIME [Concomitant]
     Active Substance: CEFIXIME
     Dosage: 0.5 DF, DAILY (400 MG)
     Dates: start: 20241218

REACTIONS (2)
  - Leukopenia [Fatal]
  - Septic shock [Fatal]

NARRATIVE: CASE EVENT DATE: 20241219
